FAERS Safety Report 5650397-X (Version None)
Quarter: 2008Q1

REPORT INFORMATION
  Report Type: 
  Country: None (occurrence: None)
  Receive Date: 20080304
  Receipt Date: 20080304
  Transmission Date: 20080703
  Serious: Yes (Disabling)
  Sender: FDA-Public Use
  Company Number: None

PATIENT
  Sex: Female
  Weight: 65.7716 kg

DRUGS (1)
  1. CHANTIX [Suspect]
     Indication: SMOKING CESSATION THERAPY
     Dosage: 1/2 FOR 5 DAYS, 1 FOR 5 DAYS, 2 FOR 20 DAYS PO
     Route: 048
     Dates: start: 20071005, end: 20071112

REACTIONS (3)
  - PRURITUS [None]
  - RASH [None]
  - SKIN DISORDER [None]
